FAERS Safety Report 5035162-9 (Version None)
Quarter: 2006Q2

REPORT INFORMATION
  Report Type: 
  Country: None (occurrence: None)
  Receive Date: 20060519
  Receipt Date: 20060203
  Transmission Date: 20061013
  Serious: No
  Sender: FDA-Public Use
  Company Number: TPA2006A00208

PATIENT
  Age: 91 Year
  Sex: Female
  Weight: 54.4316 kg

DRUGS (11)
  1. ROZEREM [Suspect]
     Indication: INSOMNIA
     Dosage: 8 MG, HS, PER ORAL
     Route: 048
     Dates: start: 20060130, end: 20060202
  2. PROTONIX (PANTOPRAZOLE) (40 MILLIGRAM) [Concomitant]
  3. NAMENDA (MEMANTINE HYDROCHLORIDE) (5 MILLIGRAM) [Concomitant]
  4. DYNACIRC (ISRADIPINE) (5 MILLIGRAM) [Concomitant]
  5. CELEBREX (CELECOXIB) (200 MILLIGRAM) [Concomitant]
  6. ADVAIR DISKUS 100/50 [Concomitant]
  7. FLONASE [Concomitant]
  8. TRUSOPT [Concomitant]
  9. TRAVATAN [Concomitant]
  10. ALLOPURINOL (ALLOPURINOL) (100 MILLIGRAM) [Concomitant]
  11. LUNESTA (ESZOPICLONE) (TABLETS) [Concomitant]

REACTIONS (3)
  - DRUG INEFFECTIVE [None]
  - INITIAL INSOMNIA [None]
  - INSOMNIA [None]
